FAERS Safety Report 14250467 (Version 1)
Quarter: 2017Q4

REPORT INFORMATION
  Report Type: Spontaneous
  Country: US (occurrence: None)
  Receive Date: 20171205
  Receipt Date: 20171205
  Transmission Date: 20180321
  Serious: Yes (Hospitalization)
  Sender: FDA-Public Use
  Company Number: None

PATIENT
  Age: 39 Year
  Sex: Female

DRUGS (1)
  1. TRACLEER [Suspect]
     Active Substance: BOSENTAN
     Indication: SCLERODERMA
     Route: 048
     Dates: start: 201606

REACTIONS (5)
  - Anaemia [None]
  - Hypoxia [None]
  - Hypotension [None]
  - Thrombocytopenia [None]
  - Tachycardia [None]

NARRATIVE: CASE EVENT DATE: 20171124
